FAERS Safety Report 21902753 (Version 1)
Quarter: 2023Q1

REPORT INFORMATION
  Report Type: Spontaneous
  Country: US (occurrence: None)
  Receive Date: 20230123
  Receipt Date: 20230123
  Transmission Date: 20230417
  Serious: No
  Sender: FDA-Public Use
  Company Number: None

PATIENT
  Sex: Female

DRUGS (1)
  1. AJOVY [Suspect]
     Active Substance: FREMANEZUMAB-VFRM
     Indication: Migraine without aura
     Dosage: 225 MG MONTHLY SUBCUTANEOUS
     Route: 058
     Dates: start: 20200925

REACTIONS (4)
  - Drug delivery system malfunction [None]
  - Syringe issue [None]
  - Exposure via skin contact [None]
  - Drug dose omission by device [None]
